FAERS Safety Report 17018148 (Version 1)
Quarter: 2019Q4

REPORT INFORMATION
  Report Type: Spontaneous
  Country: GB (occurrence: GB)
  Receive Date: 20191111
  Receipt Date: 20191111
  Transmission Date: 20200122
  Serious: Yes (Hospitalization, Other)
  Sender: FDA-Public Use
  Company Number: GB-ALLERGAN-1944985US

PATIENT
  Sex: Female
  Weight: 101 kg

DRUGS (3)
  1. SALBUTAMOL [Concomitant]
     Active Substance: ALBUTEROL
     Indication: PRODUCT USED FOR UNKNOWN INDICATION
     Route: 065
  2. OMEPRAZOLE. [Suspect]
     Active Substance: OMEPRAZOLE
     Indication: ABDOMINAL PAIN UPPER
     Route: 048
     Dates: start: 20190925, end: 20191002
  3. ESCITALOPRAM OXALATE - BP [Suspect]
     Active Substance: ESCITALOPRAM OXALATE
     Indication: PRODUCT USED FOR UNKNOWN INDICATION
     Route: 065

REACTIONS (12)
  - Hyperhidrosis [Recovered/Resolved]
  - Suicidal behaviour [Recovered/Resolved]
  - Suicide attempt [Recovering/Resolving]
  - Muscle spasms [Recovered/Resolved with Sequelae]
  - Drug interaction [Unknown]
  - Nausea [Recovered/Resolved]
  - Pyrexia [Recovered/Resolved]
  - Seizure [Recovered/Resolved with Sequelae]
  - Loss of consciousness [Recovered/Resolved with Sequelae]
  - Heart rate increased [Recovered/Resolved]
  - Paranoia [Recovered/Resolved]
  - Malaise [Recovering/Resolving]

NARRATIVE: CASE EVENT DATE: 20191001
